FAERS Safety Report 12974590 (Version 1)
Quarter: 2016Q4

REPORT INFORMATION
  Report Type: Report from Study
  Country: US (occurrence: US)
  Receive Date: 20161125
  Receipt Date: 20161125
  Transmission Date: 20170207
  Serious: Yes (Other)
  Sender: FDA-Public Use
  Company Number: US-ROCHE-1849535

PATIENT
  Age: 49 Year
  Sex: Male

DRUGS (14)
  1. ACETAMINOPHEN. [Concomitant]
     Active Substance: ACETAMINOPHEN
  2. DIAZEPAM. [Concomitant]
     Active Substance: DIAZEPAM
     Route: 065
  3. HYDROMORPHONE [Concomitant]
     Active Substance: HYDROMORPHONE
  4. BISACODYL. [Concomitant]
     Active Substance: BISACODYL
  5. FAMOTIDINE. [Concomitant]
     Active Substance: FAMOTIDINE
  6. HALOPERIDOL. [Concomitant]
     Active Substance: HALOPERIDOL
  7. DORNASE ALFA [Suspect]
     Active Substance: DORNASE ALFA
     Indication: PLEURAL INFECTION
     Dosage: IN 50 ML OF 0.9 PERCENT NACL (5 MG)
     Route: 034
  8. ALBUTEROL. [Concomitant]
     Active Substance: ALBUTEROL
  9. MIRTAZAPINE. [Concomitant]
     Active Substance: MIRTAZAPINE
  10. IPRATROPIUM [Concomitant]
     Active Substance: IPRATROPIUM
  11. ALTEPLASE [Suspect]
     Active Substance: ALTEPLASE
     Indication: PLEURAL INFECTION
     Dosage: 10 MG IN 50 ML OF 0.9 PERCENT NACL
     Route: 034
  12. GABAPENTIN. [Concomitant]
     Active Substance: GABAPENTIN
  13. OMEPRAZOLE. [Concomitant]
     Active Substance: OMEPRAZOLE
  14. VANCOMYCIN [Concomitant]
     Active Substance: VANCOMYCIN

REACTIONS (1)
  - Haemothorax [Unknown]
